FAERS Safety Report 9255116 (Version 1)
Quarter: 2013Q1

REPORT INFORMATION
  Report Type: Spontaneous
  Country: US (occurrence: None)
  Receive Date: 20121212
  Receipt Date: 20121212
  Transmission Date: 20140127
  Serious: No
  Sender: FDA-Public Use
  Company Number: 1209USA000380

PATIENT
  Age: 57 Year
  Sex: Male
  Weight: 83.9 kg

DRUGS (8)
  1. VICTRELIS [Suspect]
     Route: 048
  2. REBETOL [Suspect]
     Route: 048
  3. TRAZODONE HYDROCHLORIDE [Concomitant]
  4. WELLBUTRIN XL (BUPROPION HYDROCLORIDE) [Concomitant]
  5. PROZAC (FLUOXETINE HYDROCHLORIDE) [Concomitant]
  6. VITAMINS (UNSPECIFIED) (VITAMINS (UNSPECIFIED)) [Concomitant]
  7. CARNITINE [Concomitant]
  8. GLUCOSAMINE [Concomitant]

REACTIONS (1)
  - Red blood cell count decreased [None]
